FAERS Safety Report 5307180-4 (Version None)
Quarter: 2007Q2

REPORT INFORMATION
  Report Type: 
  Country: None (occurrence: None)
  Receive Date: 20070425
  Receipt Date: 20070214
  Transmission Date: 20071010
  Serious: No
  Sender: FDA-Public Use
  Company Number: US-AMGEN-US211174

PATIENT
  Sex: Female

DRUGS (9)
  1. VECTIBIX [Suspect]
     Indication: COLORECTAL CANCER
     Route: 042
     Dates: start: 20061129, end: 20070221
  2. ERBITUX [Suspect]
     Route: 065
  3. SYNTHROID [Concomitant]
  4. TRIAMTERENE [Concomitant]
  5. TOPROL-XL [Concomitant]
  6. POTASSIUM ACETATE [Concomitant]
  7. PREVACID [Concomitant]
  8. COSOPT [Concomitant]
  9. CHROMAGEN [Concomitant]

REACTIONS (1)
  - BLOOD MAGNESIUM DECREASED [None]
